FAERS Safety Report 23914189 (Version 1)
Quarter: 2024Q2

REPORT INFORMATION
  Report Type: Spontaneous
  Country: US (occurrence: US)
  Receive Date: 20240529
  Receipt Date: 20240529
  Transmission Date: 20240716
  Serious: Yes (Other)
  Sender: FDA-Public Use
  Company Number: US-PFIZER INC-PV202400069344

PATIENT
  Age: 35 Year
  Sex: Male

DRUGS (8)
  1. DAPTOMYCIN [Suspect]
     Active Substance: DAPTOMYCIN
     Indication: Fungal infection
     Dosage: UNK
  2. MEROPENEM [Suspect]
     Active Substance: MEROPENEM
     Indication: Fungal infection
     Dosage: UNK
     Dates: start: 20160720
  3. MEROPENEM ANHYDROUS [Suspect]
     Active Substance: MEROPENEM ANHYDROUS
     Indication: Fungal infection
     Dosage: UNK
  4. CRESEMBA [Suspect]
     Active Substance: ISAVUCONAZONIUM SULFATE
     Indication: Systemic mycosis
     Dosage: UNK
     Route: 042
     Dates: start: 20160720
  5. TELAVANCIN [Suspect]
     Active Substance: TELAVANCIN
     Indication: Systemic mycosis
     Dosage: UNK
  6. AMPHOTERICIN B [Suspect]
     Active Substance: AMPHOTERICIN B
     Indication: Systemic mycosis
     Dosage: UNK
     Dates: start: 20160720
  7. POLYMYXIN B [Suspect]
     Active Substance: POLYMYXIN B
     Indication: Systemic mycosis
     Dosage: UNK
  8. AMBISOME [Suspect]
     Active Substance: AMPHOTERICIN B
     Indication: Systemic mycosis
     Dosage: UNK

REACTIONS (4)
  - Blood creatine phosphokinase increased [Recovered/Resolved]
  - Rhabdomyolysis [Not Recovered/Not Resolved]
  - Renal impairment [Unknown]
  - Off label use [Unknown]
